FAERS Safety Report 20437236 (Version 2)
Quarter: 2022Q1

REPORT INFORMATION
  Report Type: Report from Study
  Country: FR (occurrence: FR)
  Receive Date: 20220207
  Receipt Date: 20220223
  Transmission Date: 20220423
  Serious: Yes (Hospitalization, Other)
  Sender: FDA-Public Use
  Company Number: FR-GLAXOSMITHKLINE-FR2022EME020135

PATIENT
  Age: 67 Year
  Sex: Female
  Weight: 96 kg

DRUGS (1)
  1. SOTROVIMAB [Suspect]
     Active Substance: SOTROVIMAB
     Indication: COVID-19
     Dosage: 500 MG, SINGLE INFUSION, GIVEN OVER 30 MINUTES
     Route: 042
     Dates: start: 20220202

REACTIONS (4)
  - Loss of consciousness [Unknown]
  - Syncope [Unknown]
  - Urinary incontinence [Unknown]
  - Seizure [Unknown]

NARRATIVE: CASE EVENT DATE: 20220202
